FAERS Safety Report 5758271-5 (Version None)
Quarter: 2008Q2

REPORT INFORMATION
  Report Type: 
  Country: None (occurrence: None)
  Receive Date: 20080604
  Receipt Date: 20080529
  Transmission Date: 20081010
  Serious: Yes (Other)
  Sender: FDA-Public Use
  Company Number: CA-AMGEN-KDL282067

PATIENT
  Sex: Female
  Weight: 81.7 kg

DRUGS (7)
  1. ENBREL [Suspect]
     Indication: RHEUMATOID ARTHRITIS
     Route: 058
     Dates: start: 20080129, end: 20080326
  2. METHOTREXATE [Concomitant]
     Route: 048
  3. ALTACE [Concomitant]
  4. ADALAT [Concomitant]
  5. BISOPROLOL FUMARATE [Concomitant]
  6. SYNTHROID [Concomitant]
  7. COUMADIN [Concomitant]

REACTIONS (2)
  - CARDIAC DISORDER [None]
  - PALPITATIONS [None]
